FAERS Safety Report 4855030-2 (Version None)
Quarter: 2005Q4

REPORT INFORMATION
  Report Type: 
  Country: None (occurrence: None)
  Receive Date: 20051125
  Receipt Date: 20050826
  Transmission Date: 20060501
  Serious: No
  Sender: FDA-Public Use
  Company Number: 2005US002655

PATIENT
  Age: 55 Year
  Sex: Female
  Weight: 72.8 kg

DRUGS (13)
  1. ALOXI [Suspect]
     Indication: PROPHYLAXIS OF NAUSEA AND VOMITING
     Dosage: 0.25 MG, SINGLE, INTRAVENOUS
     Route: 042
     Dates: start: 20050826, end: 20050826
  2. SODIUM CHLORIDE [Concomitant]
  3. DEXAMETHASONE [Concomitant]
  4. CIMETIDINE [Concomitant]
  5. BENADRYL [Concomitant]
  6. TAXOL [Concomitant]
  7. COUMADIN [Concomitant]
  8. LORAZEPAM [Concomitant]
  9. LASIX [Concomitant]
  10. METOPROLOL SUCCINATE [Concomitant]
  11. PRILOSEC [Concomitant]
  12. ALLEGRA [Concomitant]
  13. SOLUTIONS FOR PARENTERAL NUTRITION [Concomitant]

REACTIONS (8)
  - BACK PAIN [None]
  - CHEST DISCOMFORT [None]
  - COLD SWEAT [None]
  - DYSPNOEA [None]
  - FLUSHING [None]
  - HYPERSENSITIVITY [None]
  - NAUSEA [None]
  - RETCHING [None]
